FAERS Safety Report 7995401-9 (Version None)
Quarter: 2011Q4

REPORT INFORMATION
  Report Type: 
  Country: None (occurrence: None)
  Receive Date: 20111220
  Receipt Date: 20111213
  Transmission Date: 20120403
  Serious: Yes (Other)
  Sender: FDA-Public Use
  Company Number: SE-JNJFOC-20111206523

PATIENT
  Age: 58 Year
  Sex: Female

DRUGS (4)
  1. CONCERTA [Suspect]
     Dosage: 54 MG IN  MORNING BETWEEN 11 AM AND 1 PM AND 36 MG BETWEEN 3 AND 5 PM
     Route: 048
  2. CONCERTA [Suspect]
     Route: 048
  3. CONCERTA [Suspect]
     Indication: ATTENTION DEFICIT/HYPERACTIVITY DISORDER
     Dosage: 2X54 MG IN MORNING AND 36 MG IN THE AFTERNOON
     Route: 048
  4. CYMBALTA [Concomitant]
     Indication: PRODUCT USED FOR UNKNOWN INDICATION
     Dosage: FOR 4-5 YEARS
     Route: 065

REACTIONS (10)
  - PAIN IN EXTREMITY [None]
  - TONGUE ULCERATION [None]
  - GASTRIC DISORDER [None]
  - ARTHROPATHY [None]
  - MALAISE [None]
  - PYREXIA [None]
  - WEIGHT DECREASED [None]
  - HEPATIC ENZYME INCREASED [None]
  - INFECTION [None]
  - OEDEMA PERIPHERAL [None]
